FAERS Safety Report 4268801-0 (Version None)
Quarter: 2004Q1

REPORT INFORMATION
  Report Type: 
  Country: None (occurrence: None)
  Receive Date: 20040112
  Receipt Date: 20040112
  Transmission Date: 20041129
  Serious: Yes (Other)
  Sender: FDA-Public Use
  Company Number: None

PATIENT
  Sex: Male
  Weight: 81.6475 kg

DRUGS (2)
  1. ZOLOFT [Suspect]
     Indication: ANXIETY
     Dosage: 50 MG 1 DAILY ORAL
     Route: 048
     Dates: start: 20030115, end: 20031201
  2. ZOLOFT [Suspect]
     Indication: DEPRESSION
     Dosage: 50 MG 1 DAILY ORAL
     Route: 048
     Dates: start: 20030115, end: 20031201

REACTIONS (5)
  - AGGRESSION [None]
  - ANXIETY [None]
  - DIZZINESS [None]
  - NIGHTMARE [None]
  - PARAESTHESIA [None]
